FAERS Safety Report 15842429 (Version 1)
Quarter: 2019Q1

REPORT INFORMATION
  Report Type: Spontaneous
  Country: JP (occurrence: JP)
  Receive Date: 20190118
  Receipt Date: 20190118
  Transmission Date: 20190417
  Serious: Yes (Hospitalization, Other)
  Sender: FDA-Public Use
  Company Number: JP-MYLANLABS-2019M1003584

PATIENT
  Age: 79 Year
  Sex: Female
  Weight: 50.6 kg

DRUGS (3)
  1. CILOSTAZOL. [Suspect]
     Active Substance: CILOSTAZOL
     Indication: ANTICOAGULANT THERAPY
     Route: 065
  2. HEPARIN [Suspect]
     Active Substance: HEPARIN SODIUM
     Indication: ANTICOAGULANT THERAPY
     Dosage: 15000UNITS/DAY; STARTED AT SIX DAYS PRIOR TO TOTAL HIP REPLACEMENT AND STOPPED NINE HOURS PRIOR T...
     Route: 041
  3. TICLOPIDINE [Suspect]
     Active Substance: TICLOPIDINE
     Indication: ANTICOAGULANT THERAPY
     Route: 065

REACTIONS (2)
  - Muscle haemorrhage [Recovered/Resolved]
  - Blood pressure decreased [Recovered/Resolved]
